FAERS Safety Report 13522726 (Version 1)
Quarter: 2017Q2

REPORT INFORMATION
  Report Type: Spontaneous
  Country: GB (occurrence: GB)
  Receive Date: 20170508
  Receipt Date: 20170508
  Transmission Date: 20170830
  Serious: Yes (Other)
  Sender: FDA-Public Use
  Company Number: GB-PFIZER INC-2017193958

PATIENT
  Age: 25 Year
  Sex: Male

DRUGS (1)
  1. PREGABALIN. [Suspect]
     Active Substance: PREGABALIN
     Indication: ANXIETY

REACTIONS (5)
  - Product use in unapproved indication [Unknown]
  - Rhinorrhoea [Unknown]
  - Malaise [Unknown]
  - Depressed mood [Unknown]
  - Drug use disorder [Unknown]
